FAERS Safety Report 14851898 (Version 1)
Quarter: 2018Q2

REPORT INFORMATION
  Report Type: Spontaneous
  Country: FR (occurrence: FR)
  Receive Date: 20180507
  Receipt Date: 20180507
  Transmission Date: 20180711
  Serious: Yes (Other)
  Sender: FDA-Public Use
  Company Number: FR-MERCK KGAA-2047291

PATIENT
  Age: 40 Year
  Sex: Female
  Weight: 55 kg

DRUGS (1)
  1. NOVOTHYROX [Suspect]
     Active Substance: LEVOTHYROXINE SODIUM
     Indication: AUTOIMMUNE THYROIDITIS
     Route: 048
     Dates: start: 20170501, end: 20171014

REACTIONS (6)
  - Depression [Unknown]
  - Amenorrhoea [Unknown]
  - Diffuse alopecia [Unknown]
  - Arthralgia [Unknown]
  - Asthenia [Unknown]
  - Constipation [Unknown]

NARRATIVE: CASE EVENT DATE: 201707
